FAERS Safety Report 7877419-X (Version None)
Quarter: 2011Q4

REPORT INFORMATION
  Report Type: 
  Country: None (occurrence: None)
  Receive Date: 20111031
  Receipt Date: 20111025
  Transmission Date: 20120403
  Serious: Yes (Hospitalization, Other)
  Sender: FDA-Public Use
  Company Number: US-ROXANE LABORATORIES, INC.-2011-RO-01541RO

PATIENT
  Age: 53 Year
  Sex: Female

DRUGS (6)
  1. PREDNISONE [Suspect]
     Indication: AUTOIMMUNE DISORDER
     Dosage: 10 MG
  2. VORICONAZOLE [Suspect]
     Indication: WOUND INFECTION STAPHYLOCOCCAL
     Dosage: 400 MG
     Route: 048
  3. AMPHOTERICIN B [Suspect]
     Indication: FUSARIUM INFECTION
     Route: 042
  4. VORICONAZOLE [Suspect]
     Dosage: 1200 MG
     Route: 048
  5. AMPHOTERICIN B [Suspect]
     Indication: WOUND INFECTION STAPHYLOCOCCAL
     Dosage: 500 MG
     Route: 042
  6. VORICONAZOLE [Suspect]
     Dosage: 800 MG
     Route: 048

REACTIONS (9)
  - BLOOD ALKALINE PHOSPHATASE INCREASED [None]
  - ARACHNOIDITIS [None]
  - MYOCARDIAL INFARCTION [None]
  - MYELITIS [None]
  - VISUAL ACUITY REDUCED [None]
  - WOUND INFECTION STAPHYLOCOCCAL [None]
  - BONE ABSCESS [None]
  - OSTEOMYELITIS [None]
  - FUSARIUM INFECTION [None]
